FAERS Safety Report 21627603 (Version 1)
Quarter: 2022Q4

REPORT INFORMATION
  Report Type: Report from Study
  Country: US (occurrence: US)
  Receive Date: 20221122
  Receipt Date: 20221122
  Transmission Date: 20230113
  Serious: No
  Sender: FDA-Public Use
  Company Number: US-ABBVIE-22K-163-4522103-00

PATIENT
  Sex: Female

DRUGS (1)
  1. IMBRUVICA [Suspect]
     Active Substance: IBRUTINIB
     Indication: Chronic lymphocytic leukaemia
     Route: 048

REACTIONS (6)
  - Urinary tract infection [Unknown]
  - Immune system disorder [Unknown]
  - Neuropathy peripheral [Unknown]
  - Diarrhoea [Unknown]
  - White blood cell count increased [Unknown]
  - Laboratory test abnormal [Unknown]
